FAERS Safety Report 6015312-8 (Version None)
Quarter: 2008Q4

REPORT INFORMATION
  Report Type: 
  Country: None (occurrence: None)
  Receive Date: 20081218
  Receipt Date: 20081212
  Transmission Date: 20090506
  Serious: Yes (Hospitalization)
  Sender: FDA-Public Use
  Company Number: 1000003200

PATIENT
  Age: 92 Year
  Sex: Female

DRUGS (6)
  1. CELEXA [Suspect]
     Indication: DEPRESSION
     Dosage: 10 MG (10 MG, 1 IN 1 D), ORAL
     Route: 048
     Dates: start: 20080314, end: 20081102
  2. VASOTEC [Concomitant]
  3. LASIX [Concomitant]
  4. ASPIRIN [Concomitant]
  5. SYNTHROID [Concomitant]
  6. LOPRESSOR [Concomitant]

REACTIONS (4)
  - ALOPECIA [None]
  - DYSPHAGIA [None]
  - FALL [None]
  - HYPOCHROMIC ANAEMIA [None]
